FAERS Safety Report 5534185-0 (Version None)
Quarter: 2007Q4

REPORT INFORMATION
  Report Type: 
  Country: None (occurrence: None)
  Receive Date: 20071205
  Receipt Date: 20071126
  Transmission Date: 20080405
  Serious: Yes (Other)
  Sender: FDA-Public Use
  Company Number: EG-AVENTIS-200721037GDDC

PATIENT
  Age: 63 Year
  Sex: Female

DRUGS (3)
  1. ARAVA [Suspect]
     Indication: RHEUMATOID ARTHRITIS
     Route: 048
  2. ACTONEL [Concomitant]
     Indication: OSTEOPOROSIS
     Dosage: DOSE: UNK
     Route: 048
  3. LACTOCAL [Concomitant]
     Indication: OSTEOPOROSIS
     Dosage: DOSE: UNK

REACTIONS (2)
  - ALANINE AMINOTRANSFERASE INCREASED [None]
  - HEPATIC ENZYME INCREASED [None]
